FAERS Safety Report 6668159-3 (Version None)
Quarter: 2010Q2

REPORT INFORMATION
  Report Type: 
  Country: None (occurrence: None)
  Receive Date: 20100406
  Receipt Date: 20100329
  Transmission Date: 20101027
  Serious: Yes (Other)
  Sender: FDA-Public Use
  Company Number: US-SP-2010-01003

PATIENT
  Sex: Male

DRUGS (4)
  1. THERACYS [Suspect]
     Indication: BLADDER CANCER
     Route: 043
     Dates: start: 20100114, end: 20100121
  2. THERACYS [Suspect]
     Route: 042
     Dates: start: 20100107, end: 20100107
  3. ASPIRIN [Concomitant]
  4. MULTI VIT [Concomitant]

REACTIONS (13)
  - BALANCE DISORDER [None]
  - BOVINE TUBERCULOSIS [None]
  - CHILLS [None]
  - COGNITIVE DISORDER [None]
  - COLD SWEAT [None]
  - ELECTROENCEPHALOGRAM ABNORMAL [None]
  - FATIGUE [None]
  - HEADACHE [None]
  - HYPERHIDROSIS [None]
  - MALAISE [None]
  - MOTOR DYSFUNCTION [None]
  - NUCLEAR MAGNETIC RESONANCE IMAGING BRAIN ABNORMAL [None]
  - PYREXIA [None]
